FAERS Safety Report 13862453 (Version 5)
Quarter: 2017Q4

REPORT INFORMATION
  Report Type: Spontaneous
  Country: DE (occurrence: DE)
  Receive Date: 20170813
  Receipt Date: 20171206
  Transmission Date: 20180320
  Serious: Yes (Other)
  Sender: FDA-Public Use
  Company Number: DE-BEH-2017082731

PATIENT
  Age: 31 Year
  Sex: Female
  Weight: 54 kg

DRUGS (4)
  1. STARLETTA HEXAL [Concomitant]
     Active Substance: DIENOGEST\ETHINYL ESTRADIOL
     Dosage: 1 X DAILY
     Route: 065
  2. HIZENTRA [Suspect]
     Active Substance: HUMAN IMMUNOGLOBULIN G
     Indication: IMMUNODEFICIENCY COMMON VARIABLE
     Dosage: 20 ML, BIW
     Route: 058
     Dates: start: 20170530
  3. HIZENTRA [Suspect]
     Active Substance: HUMAN IMMUNOGLOBULIN G
     Dosage: 20 ML, BIW
     Route: 058
     Dates: start: 20170803
  4. NOVALGIN [Concomitant]
     Active Substance: METAMIZOLE SODIUM
     Dosage: AS NEEDED
     Route: 065

REACTIONS (16)
  - Infusion site haemorrhage [Not Recovered/Not Resolved]
  - Pain [Unknown]
  - Infusion site paraesthesia [Not Recovered/Not Resolved]
  - Burning sensation [Unknown]
  - Infusion site erythema [Not Recovered/Not Resolved]
  - Headache [Not Recovered/Not Resolved]
  - Injection site induration [Not Recovered/Not Resolved]
  - Abdominal pain [Not Recovered/Not Resolved]
  - Feeling of body temperature change [Unknown]
  - Infusion site pruritus [Not Recovered/Not Resolved]
  - Hyperhidrosis [Not Recovered/Not Resolved]
  - Fatigue [Unknown]
  - Arthralgia [Unknown]
  - Infusion site pain [Not Recovered/Not Resolved]
  - Rheumatoid arthritis [Not Recovered/Not Resolved]
  - Abdominal pain [Unknown]

NARRATIVE: CASE EVENT DATE: 20170803
